FAERS Safety Report 10362905 (Version 1)
Quarter: 2014Q1

REPORT INFORMATION
  Report Type: Spontaneous
  Country: US (occurrence: None)
  Receive Date: 20140306
  Receipt Date: 20140306
  Transmission Date: 20141002
  Serious: Yes (Other)
  Sender: FDA-Public Use
  Company Number: 163-21880-13022006

PATIENT
  Age: 75 Year
  Sex: Female
  Weight: 53.75 kg

DRUGS (13)
  1. REVLIMID (LENALIDOMIDE) (25 MILLIGRAM, CAPSULES) [Suspect]
     Indication: PLASMA CELL MYELOMA
     Route: 048
     Dates: start: 201012
  2. ACYCLOVIR (ACICLOVIR) (UNKNOWN) [Concomitant]
  3. ASPIRIN (ACETYLSALICYLIC ACID) (UNKNOWN) (ACETYLSALICYLIC ACID) [Concomitant]
  4. VITAMIN B12 (CYANOCOBALAMIN) (INJECTION) [Concomitant]
  5. BACTRIM (BACTRIM) (UNKNOWN) [Concomitant]
  6. CALCIUM (CALCIUM) (UNKNOWN) [Concomitant]
  7. FOSAMAX (ALENDRONATE SODIUM) (UNKNOWN) [Concomitant]
  8. GABAPENTIN (GABAPENTIN) (UNKNOWN) (GABAPENTIN) [Concomitant]
  9. PROTONIX (PANTOPRAZOLE) (UNKNOWN) [Concomitant]
  10. TESSALON PERLE (BENZONATATE) (UNKNOWN) [Concomitant]
  11. ALBUTEROL (SALBUTAMOL) (INHALANT) [Concomitant]
  12. ZOFRAN (ONDANSETRON HYDROCHLORIDE) (UNKNOWN) [Concomitant]
  13. BOOST (BOOST) (UNKNOWN) [Concomitant]

REACTIONS (1)
  - Pancytopenia [None]
